FAERS Safety Report 17541565 (Version 1)
Quarter: 2020Q1

REPORT INFORMATION
  Report Type: Spontaneous
  Country: GR (occurrence: GR)
  Receive Date: 20200313
  Receipt Date: 20200313
  Transmission Date: 20200409
  Serious: Yes (Hospitalization)
  Sender: FDA-Public Use
  Company Number: GR-B.I. PHARMACEUTICALS,INC./RIDGEFIELD-2020-BI-013316

PATIENT
  Age: 16 Year
  Sex: Female

DRUGS (5)
  1. VECURONIUM [Concomitant]
     Active Substance: VECURONIUM BROMIDE
     Indication: SPINAL FUSION SURGERY
     Route: 065
  2. CATAPRESAN [Suspect]
     Active Substance: CLONIDINE
     Indication: SPINAL OPERATION
     Route: 065
  3. MORPHINE [Concomitant]
     Active Substance: MORPHINE
     Indication: SPINAL FUSION SURGERY
     Route: 042
  4. FENTANYL. [Concomitant]
     Active Substance: FENTANYL
     Indication: SPINAL FUSION SURGERY
     Route: 065
  5. ISOFLURANE. [Concomitant]
     Active Substance: ISOFLURANE
     Indication: SPINAL FUSION SURGERY
     Route: 065

REACTIONS (4)
  - Cerebrospinal fluid leakage [Recovered/Resolved]
  - Off label use [Unknown]
  - Ileus [Recovered/Resolved]
  - Compartment syndrome [Recovered/Resolved with Sequelae]
